FAERS Safety Report 6334739-8 (Version None)
Quarter: 2009Q3

REPORT INFORMATION
  Report Type: 
  Country: None (occurrence: None)
  Receive Date: 20090831
  Receipt Date: 20090821
  Transmission Date: 20100115
  Serious: Yes (Death)
  Sender: FDA-Public Use
  Company Number: JP-ABBOTT-09P-087-0591614-00

PATIENT
  Sex: Male
  Weight: 62 kg

DRUGS (6)
  1. HUMIRA [Suspect]
     Indication: RHEUMATOID ARTHRITIS
     Route: 058
     Dates: start: 20090728, end: 20090812
  2. TACROLIMUS [Concomitant]
     Indication: RHEUMATOID ARTHRITIS
     Dosage: 3MG DAILY
     Route: 048
     Dates: start: 20081216, end: 20090814
  3. PREDNISOLONE [Concomitant]
     Indication: RHEUMATOID ARTHRITIS
     Dosage: 9 MG DAILY
     Route: 048
     Dates: start: 20050720, end: 20090814
  4. CANDESARTAN CILEXETIL [Concomitant]
     Indication: RHEUMATOID ARTHRITIS
     Dosage: 4 MG DAILY
     Route: 048
     Dates: start: 20081210, end: 20090814
  5. OMEPRAZOLE [Concomitant]
     Indication: RHEUMATOID ARTHRITIS
     Dosage: 10 G DAILY
     Route: 048
     Dates: start: 20050720, end: 20090814
  6. SERTRALINE HYDROCHLORIDE [Concomitant]
     Indication: DEPRESSION
     Dosage: 50 G DAILY
     Dates: start: 20090730, end: 20090814

REACTIONS (1)
  - COMPLETED SUICIDE [None]
